FAERS Safety Report 23966314 (Version 1)
Quarter: 2024Q2

REPORT INFORMATION
  Report Type: Report from Study
  Country: US (occurrence: US)
  Receive Date: 20240612
  Receipt Date: 20240612
  Transmission Date: 20240716
  Serious: Yes (Hospitalization, Other)
  Sender: FDA-Public Use
  Company Number: US-ROCHE-3562851

PATIENT
  Sex: Female

DRUGS (1)
  1. ERLOTINIB [Suspect]
     Active Substance: ERLOTINIB
     Indication: Lung neoplasm malignant
     Route: 048
     Dates: start: 202312

REACTIONS (5)
  - Staphylococcal infection [Unknown]
  - Immunosuppression [Unknown]
  - Acne [Recovered/Resolved]
  - Memory impairment [Unknown]
  - Injury [Unknown]
